FAERS Safety Report 9387113 (Version 1)
Quarter: 2013Q3

REPORT INFORMATION
  Report Type: Spontaneous
  Country: JP (occurrence: JP)
  Receive Date: 20130708
  Receipt Date: 20130708
  Transmission Date: 20140515
  Serious: Yes (Other)
  Sender: FDA-Public Use
  Company Number: PHHY2013JP069489

PATIENT
  Age: 51 Year
  Sex: Female

DRUGS (3)
  1. TRIAMCINOLONE [Suspect]
     Indication: RHEUMATOID ARTHRITIS
     Dosage: UNK UKN, QMO
     Route: 014
  2. METHOTREXATE [Concomitant]
     Indication: RHEUMATOID ARTHRITIS
     Dosage: 16 MG, QW
  3. ABATACEPT [Concomitant]
     Indication: RHEUMATOID ARTHRITIS
     Dosage: 500 MG, QMO

REACTIONS (1)
  - Articular calcification [Unknown]
